FAERS Safety Report 17013649 (Version 1)
Quarter: 2019Q4

REPORT INFORMATION
  Report Type: Spontaneous
  Country: IT (occurrence: IT)
  Receive Date: 20191110
  Receipt Date: 20191110
  Transmission Date: 20200122
  Serious: Yes (Other)
  Sender: FDA-Public Use
  Company Number: IT-SA-2019SA309553

PATIENT
  Age: 41 Year
  Sex: Male

DRUGS (2)
  1. STILNOX [Suspect]
     Active Substance: ZOLPIDEM TARTRATE
     Indication: DRUG ABUSE
     Dosage: 15 DF, TOTAL
     Route: 048
     Dates: start: 20191018, end: 20191018
  2. NOZINAN [Suspect]
     Active Substance: LEVOMEPROMAZINE
     Indication: SUBSTANCE-INDUCED PSYCHOTIC DISORDER
     Dosage: 1 DF, TOTAL
     Route: 048
     Dates: start: 20191018, end: 20191018

REACTIONS (4)
  - Generalised tonic-clonic seizure [Not Recovered/Not Resolved]
  - Loss of consciousness [Not Recovered/Not Resolved]
  - Catatonia [Not Recovered/Not Resolved]
  - Drug abuse [Unknown]

NARRATIVE: CASE EVENT DATE: 20191018
